FAERS Safety Report 7632399-7 (Version None)
Quarter: 2011Q3

REPORT INFORMATION
  Report Type: 
  Country: None (occurrence: None)
  Receive Date: 20110725
  Receipt Date: 20100823
  Transmission Date: 20111222
  Serious: Yes (Hospitalization)
  Sender: FDA-Public Use
  Company Number: US-BRISTOL-MYERS SQUIBB COMPANY-15251424

PATIENT
  Age: 68 Year
  Sex: Female

DRUGS (2)
  1. LOVENOX [Suspect]
     Indication: HIP FRACTURE
     Route: 065
     Dates: start: 20080101
  2. COUMADIN [Suspect]
     Route: 065

REACTIONS (1)
  - HAEMATOMA [None]
